FAERS Safety Report 4656245-9 (Version None)
Quarter: 2005Q2

REPORT INFORMATION
  Report Type: 
  Country: None (occurrence: None)
  Receive Date: 20050509
  Receipt Date: 20050311
  Transmission Date: 20051028
  Serious: No
  Sender: FDA-Public Use
  Company Number: US-GLAXOSMITHKLINE-A0549395A

PATIENT
  Age: 59 Year
  Sex: Female

DRUGS (8)
  1. AVANDAMET [Suspect]
     Dosage: 1TAB PER DAY
     Route: 048
  2. SYNTHROID [Concomitant]
  3. HYDROCHLOROTHIAZIDE [Concomitant]
  4. PRINIVIL [Concomitant]
  5. LIPITOR [Concomitant]
  6. GLUCOSAMINE [Concomitant]
  7. ANTIOXIDANT [Concomitant]
  8. BLACK COHOSH [Concomitant]

REACTIONS (1)
  - BLOOD GLUCOSE INCREASED [None]
